FAERS Safety Report 17069189 (Version 1)
Quarter: 2019Q4

REPORT INFORMATION
  Report Type: Spontaneous
  Country: US (occurrence: US)
  Receive Date: 20191124
  Receipt Date: 20191124
  Transmission Date: 20200122
  Serious: No
  Sender: FDA-Public Use
  Company Number: US-009507513-1910USA016622

PATIENT
  Sex: Male

DRUGS (2)
  1. BRIDION [Suspect]
     Active Substance: SUGAMMADEX
     Indication: NEUROMUSCULAR BLOCKADE REVERSAL
     Dosage: A DOSE OF BRIDION
     Dates: start: 201909
  2. BRIDION [Suspect]
     Active Substance: SUGAMMADEX
     Dosage: ANOTHER DOSE OF BRIDION
     Dates: start: 201909

REACTIONS (2)
  - Therapy non-responder [Unknown]
  - Extra dose administered [Unknown]

NARRATIVE: CASE EVENT DATE: 201909
